FAERS Safety Report 21384793 (Version 4)
Quarter: 2022Q4

REPORT INFORMATION
  Report Type: Spontaneous
  Country: US (occurrence: US)
  Receive Date: 20220928
  Receipt Date: 20221107
  Transmission Date: 20230113
  Serious: No
  Sender: FDA-Public Use
  Company Number: US-PFIZER INC-202201155080

PATIENT
  Age: 12 Year
  Sex: Female

DRUGS (1)
  1. GENOTROPIN [Suspect]
     Active Substance: SOMATROPIN
     Indication: Turner^s syndrome
     Dosage: 2 MG, 1X/DAY (BY INJECTION INTO STOMACH, LEG, OR BUTT)
     Dates: start: 2017

REACTIONS (3)
  - Device leakage [Unknown]
  - Needle issue [Unknown]
  - Device use issue [Unknown]
